FAERS Safety Report 10526151 (Version 4)
Quarter: 2014Q4

REPORT INFORMATION
  Report Type: Spontaneous
  Country: CZ (occurrence: CZ)
  Receive Date: 20141017
  Receipt Date: 20141106
  Transmission Date: 20150528
  Serious: Yes (Death, Other)
  Sender: FDA-Public Use
  Company Number: CZ-GILEAD-2014-0118804

PATIENT
  Age: 59 Year
  Sex: Male

DRUGS (1)
  1. SOVALDI [Suspect]
     Active Substance: SOFOSBUVIR
     Indication: HEPATITIS C
     Dosage: 400 MG, UNK
     Route: 048
     Dates: start: 20140815, end: 20141010

REACTIONS (3)
  - Hepatitis acute [Fatal]
  - Liver transplant [Fatal]
  - Hepatic fibrosis [Fatal]

NARRATIVE: CASE EVENT DATE: 20141010
